FAERS Safety Report 6417272-4 (Version None)
Quarter: 2009Q4

REPORT INFORMATION
  Report Type: 
  Country: None (occurrence: None)
  Receive Date: 20091028
  Receipt Date: 20091014
  Transmission Date: 20100525
  Serious: Yes (Other)
  Sender: FDA-Public Use
  Company Number: PHEH2009US11135

PATIENT
  Sex: Female
  Weight: 51.3 kg

DRUGS (8)
  1. EXJADE [Suspect]
     Indication: SICKLE CELL ANAEMIA
     Dosage: 1000-1250 MG DAILY
     Route: 048
     Dates: start: 20070601, end: 20090701
  2. EXJADE [Suspect]
     Indication: BLOOD IRON INCREASED
  3. FOLIC ACID [Concomitant]
     Dosage: 1 MG, QD
     Route: 048
  4. NSAID'S [Concomitant]
  5. PENICILLIN ^GRUNENTHAL^ [Concomitant]
     Indication: SPLENECTOMY
     Dosage: 250 MG, BID
     Route: 048
  6. HU-TET [Concomitant]
  7. VITAMIN D [Concomitant]
     Indication: HYPOVITAMINOSIS
     Dosage: 2000 MG, QD
     Route: 048
     Dates: start: 20081101
  8. CALCIUM [Concomitant]
     Indication: HYPOVITAMINOSIS
     Dosage: 1000 MG, QD
     Route: 048
     Dates: start: 20081101

REACTIONS (9)
  - ALANINE AMINOTRANSFERASE INCREASED [None]
  - ASPARTATE AMINOTRANSFERASE INCREASED [None]
  - BLOOD ALKALINE PHOSPHATASE INCREASED [None]
  - CALCIUM DEFICIENCY [None]
  - LIVER DISORDER [None]
  - LIVER FUNCTION TEST ABNORMAL [None]
  - PLATELET COUNT INCREASED [None]
  - VITAMIN D DEFICIENCY [None]
  - WHITE BLOOD CELL COUNT INCREASED [None]
